FAERS Safety Report 17880893 (Version 4)
Quarter: 2020Q3

REPORT INFORMATION
  Report Type: Spontaneous
  Country: US (occurrence: US)
  Receive Date: 20200610
  Receipt Date: 20200807
  Transmission Date: 20201103
  Serious: Yes (Other)
  Sender: FDA-Public Use
  Company Number: US-GLAXOSMITHKLINE-US2020AMR095247

PATIENT
  Sex: Female

DRUGS (3)
  1. ZEJULA [Suspect]
     Active Substance: NIRAPARIB
     Indication: OVARIAN CANCER
     Dosage: 200 MG, QD
     Dates: start: 20200525
  2. AVASTIN (ATORVASTATIN) [Suspect]
     Active Substance: ATORVASTATIN CALCIUM
     Indication: PRODUCT USED FOR UNKNOWN INDICATION
     Dosage: UNK UNK, Z (EVERY 3 WEEKS)
  3. ZEJULA [Suspect]
     Active Substance: NIRAPARIB
     Dosage: 200 MG, QD (QPM)

REACTIONS (16)
  - Dysgeusia [Unknown]
  - Dysphagia [Unknown]
  - Blood potassium decreased [Unknown]
  - Parosmia [Unknown]
  - Pain in extremity [Unknown]
  - Constipation [Unknown]
  - Neuropathy peripheral [Not Recovered/Not Resolved]
  - Temporomandibular joint syndrome [Unknown]
  - Feeling abnormal [Unknown]
  - Gingival bleeding [Unknown]
  - Weight decreased [Unknown]
  - Dyspnoea [Unknown]
  - Bruxism [Unknown]
  - Hypoaesthesia [Unknown]
  - Platelet count decreased [Unknown]
  - Oral pain [Recovering/Resolving]
